FAERS Safety Report 25635510 (Version 1)
Quarter: 2025Q3

REPORT INFORMATION
  Report Type: Spontaneous
  Country: TR (occurrence: TR)
  Receive Date: 20250802
  Receipt Date: 20250802
  Transmission Date: 20251020
  Serious: Yes (Death, Life-Threatening, Hospitalization)
  Sender: ACCORD
  Company Number: TR-MLMSERVICE-20250714-PI578427-00218-2

PATIENT
  Age: 34 Year
  Sex: Female

DRUGS (8)
  1. METHOTREXATE [Suspect]
     Active Substance: METHOTREXATE
     Indication: B-cell type acute leukaemia
     Dates: start: 20250106, end: 20250108
  2. PREDNISOLONE [Concomitant]
     Active Substance: PREDNISOLONE
     Indication: B-cell type acute leukaemia
     Dosage: 2X25 MG/M2/DAY FOR 3 DAYS
     Dates: start: 20250106, end: 20250109
  3. FOLIC ACID [Concomitant]
     Active Substance: FOLIC ACID
     Dates: start: 202501
  4. CYTARABINE [Concomitant]
     Active Substance: CYTARABINE
     Indication: B-cell type acute leukaemia
     Dosage: 2X3000 MG/M2/DAY FOR 2 DAYS
     Dates: start: 20250106, end: 20250108
  5. CYTARABINE [Concomitant]
     Active Substance: CYTARABINE
     Indication: B-cell type acute leukaemia
     Dates: start: 20250114, end: 20250114
  6. METHOTREXATE [Suspect]
     Active Substance: METHOTREXATE
     Indication: B-cell type acute leukaemia
     Route: 037
  7. METHOTREXATE [Suspect]
     Active Substance: METHOTREXATE
     Indication: B-cell type acute leukaemia
     Route: 037
     Dates: start: 20250114, end: 20250114
  8. CYTARABINE [Concomitant]
     Active Substance: CYTARABINE
     Indication: B-cell type acute leukaemia

REACTIONS (8)
  - Toxic epidermal necrolysis [Fatal]
  - Acute kidney injury [Fatal]
  - Respiratory arrest [Fatal]
  - Hypernatraemia [Fatal]
  - Cardiac arrest [Fatal]
  - Multiple organ dysfunction syndrome [Fatal]
  - Speech disorder [Unknown]
  - Epilepsy [Unknown]

NARRATIVE: CASE EVENT DATE: 20250110
